FAERS Safety Report 24745102 (Version 1)
Quarter: 2024Q4

REPORT INFORMATION
  Report Type: Spontaneous
  Country: FR (occurrence: FR)
  Receive Date: 20241217
  Receipt Date: 20241217
  Transmission Date: 20250114
  Serious: Yes (Hospitalization)
  Sender: B BRAUN
  Company Number: FR-B.Braun Medical Inc.-2167300

PATIENT
  Age: 62 Year
  Sex: Male
  Weight: 54 kg

DRUGS (1)
  1. METRONIDAZOLE [Suspect]
     Active Substance: METRONIDAZOLE
     Indication: Abscess
     Dates: start: 20241010, end: 20241105

REACTIONS (1)
  - Vasculitis [Recovered/Resolved]
